FAERS Safety Report 13745712 (Version 3)
Quarter: 2017Q4

REPORT INFORMATION
  Report Type: Report from Study
  Country: FR (occurrence: FR)
  Receive Date: 20170712
  Receipt Date: 20171222
  Transmission Date: 20180320
  Serious: Yes (Hospitalization, Disabling)
  Sender: FDA-Public Use
  Company Number: FR-ROCHE-1959883

PATIENT
  Age: 63 Year
  Sex: Male
  Weight: 82 kg

DRUGS (11)
  1. DEXERYL (FRANCE) [Concomitant]
     Active Substance: GLYCERIN\PARAFFIN
     Indication: PRURITUS
     Route: 061
     Dates: start: 20150511, end: 201707
  2. NOVONORM [Concomitant]
     Active Substance: REPAGLINIDE
     Route: 048
     Dates: start: 2000
  3. ATEZOLIZUMAB. [Suspect]
     Active Substance: ATEZOLIZUMAB
     Indication: RENAL CELL CARCINOMA
     Dosage: DATE OF MOST RECENT DOSE (1200 MG) OF ATEZOLIZUMAB PRIOR TO AE ONSET: 14/JUN/2017
     Route: 042
     Dates: start: 20160420
  4. JANUMET [Concomitant]
     Active Substance: METFORMIN HYDROCHLORIDE\SITAGLIPTIN PHOSPHATE
     Indication: TYPE 2 DIABETES MELLITUS
     Route: 048
     Dates: start: 2000
  5. NOVONORM [Concomitant]
     Active Substance: REPAGLINIDE
     Indication: TYPE 2 DIABETES MELLITUS
     Route: 048
     Dates: start: 2000
  6. LEVOTHYROX [Concomitant]
     Active Substance: LEVOTHYROXINE
     Indication: HYPOTHYROIDISM
     Route: 048
     Dates: start: 20160824, end: 20171129
  7. PULMICORT TURBUHALER [Concomitant]
     Active Substance: BUDESONIDE
     Indication: ORAL INFECTION
     Dosage: 0.5 OTHER
     Route: 050
     Dates: start: 20170407
  8. COVERAM [Concomitant]
     Active Substance: AMLODIPINE\PERINDOPRIL
     Indication: PRURITUS
     Route: 048
     Dates: start: 201707
  9. EUTHYRAL [Concomitant]
     Active Substance: LEVOTHYROXINE SODIUM\LIOTHYRONINE SODIUM
     Indication: HYPOTHYROIDISM
     Route: 048
  10. BEVACIZUMAB. [Suspect]
     Active Substance: BEVACIZUMAB
     Indication: RENAL CELL CARCINOMA
     Dosage: DATE OF MOST RECENT DOSE (1250 MG) OF BEVACIZUMAB PRIOR TO AE ONSET: 26/OCT/2016
     Route: 042
     Dates: start: 20160420
  11. ZOFENIL [Concomitant]
     Active Substance: ZOFENOPRIL
     Indication: HYPERTENSION
     Route: 048
     Dates: start: 2011, end: 20170710

REACTIONS (1)
  - Transient ischaemic attack [Recovered/Resolved]

NARRATIVE: CASE EVENT DATE: 20170704
